FAERS Safety Report 6631567-0 (Version None)
Quarter: 2010Q1

REPORT INFORMATION
  Report Type: 
  Country: None (occurrence: None)
  Receive Date: 20100312
  Receipt Date: 20100308
  Transmission Date: 20100710
  Serious: Yes (Death)
  Sender: FDA-Public Use
  Company Number: PHHY2010GB14174

PATIENT

DRUGS (1)
  1. CARBAMAZEPINE [Suspect]
     Dosage: UNK

REACTIONS (2)
  - CARDIOGENIC SHOCK [None]
  - MYOCARDITIS [None]
